FAERS Safety Report 7819207-6 (Version None)
Quarter: 2011Q4

REPORT INFORMATION
  Report Type: 
  Country: None (occurrence: None)
  Receive Date: 20111018
  Receipt Date: 20111012
  Transmission Date: 20120403
  Serious: Yes (Other)
  Sender: FDA-Public Use
  Company Number: US-BRISTOL-MYERS SQUIBB COMPANY-16158396

PATIENT
  Sex: Female

DRUGS (1)
  1. MEGACE [Suspect]
     Indication: ENDOMETRIAL CANCER

REACTIONS (1)
  - NEOPLASM MALIGNANT [None]
